FAERS Safety Report 9858366 (Version 1)
Quarter: 2014Q1

REPORT INFORMATION
  Report Type: Report from Study
  Country: JP (occurrence: JP)
  Receive Date: 20140131
  Receipt Date: 20140131
  Transmission Date: 20141002
  Serious: Yes (Other)
  Sender: FDA-Public Use
  Company Number: JP-ASTELLAS-2014JP000712

PATIENT
  Age: 78 Year
  Sex: Female
  Weight: 55.6 kg

DRUGS (7)
  1. MIRABEGRON [Suspect]
     Indication: HYPERTONIC BLADDER
     Dosage: 50 MG, UID/QD
     Route: 048
     Dates: start: 20130731
  2. LIVALO [Concomitant]
     Indication: HYPERLIPIDAEMIA
     Dosage: 2 MG, UNKNOWN/D
     Route: 048
  3. COSPANON [Concomitant]
     Indication: BILIARY DYSKINESIA
     Dosage: 240 MG, UNKNOWN/D
     Route: 048
  4. SIGMART [Concomitant]
     Indication: ANGINA PECTORIS
     Dosage: 15 MG, UNKNOWN/D
     Route: 048
  5. GASMOTIN [Concomitant]
     Indication: GASTRITIS
     Dosage: 15 MG, UNKNOWN/D
     Route: 048
  6. DOGMATYL [Concomitant]
     Indication: GASTRIC ULCER
     Dosage: 150 MG, UNKNOWN/D
     Route: 048
  7. GASTER [Concomitant]
     Indication: GASTRIC ULCER
     Dosage: 20 MG, UNKNOWN/D
     Route: 048

REACTIONS (2)
  - Cystitis [Recovered/Resolved]
  - Pyelonephritis acute [Recovered/Resolved]
